FAERS Safety Report 7521025-3 (Version None)
Quarter: 2011Q2

REPORT INFORMATION
  Report Type: 
  Country: None (occurrence: None)
  Receive Date: 20110603
  Receipt Date: 20100920
  Transmission Date: 20111010
  Serious: Yes (Hospitalization, Other)
  Sender: FDA-Public Use
  Company Number: US-BAYER-201021585NA

PATIENT
  Age: 42 Year
  Sex: Female
  Weight: 63 kg

DRUGS (7)
  1. YAZ [Suspect]
     Indication: MENSTRUAL CYCLE MANAGEMENT
  2. YASMIN [Suspect]
     Indication: MENSTRUAL CYCLE MANAGEMENT
     Route: 048
     Dates: start: 20080201, end: 20081001
  3. YAZ [Suspect]
     Indication: ORAL CONTRACEPTION
     Route: 048
     Dates: start: 20080201, end: 20081001
  4. OMEPRAZOLE [Concomitant]
     Dosage: 20 MG, QD
     Dates: start: 20081002, end: 20081102
  5. IBUPROFEN [Concomitant]
     Dosage: UNK
     Dates: start: 20070101, end: 20090101
  6. YASMIN [Suspect]
     Indication: ORAL CONTRACEPTION
  7. METOCLOPRAMIDE [Concomitant]
     Dosage: 10 MG, UNK

REACTIONS (8)
  - PAIN IN EXTREMITY [None]
  - DEPRESSION [None]
  - THROMBOPHLEBITIS [None]
  - THROMBOSIS [None]
  - EMBOLISM VENOUS [None]
  - ANXIETY [None]
  - OEDEMA PERIPHERAL [None]
  - SKIN WARM [None]
